FAERS Safety Report 23640425 (Version 4)
Quarter: 2024Q2

REPORT INFORMATION
  Report Type: Spontaneous
  Country: JP (occurrence: JP)
  Receive Date: 20240317
  Receipt Date: 20240613
  Transmission Date: 20240716
  Serious: Yes (Other)
  Sender: FDA-Public Use
  Company Number: JP-002147023-NVSJ2024JP003196

PATIENT
  Age: 61 Year
  Sex: Male
  Weight: 54 kg

DRUGS (2)
  1. COSENTYX [Suspect]
     Active Substance: SECUKINUMAB
     Indication: Psoriatic arthropathy
     Dosage: 300 MG /DOSE
     Route: 058
     Dates: start: 20220829
  2. COSENTYX [Suspect]
     Active Substance: SECUKINUMAB
     Dosage: 300 MG, Q4W
     Route: 058
     Dates: end: 20231129

REACTIONS (5)
  - Bronchiolitis [Recovered/Resolved]
  - Cough [Unknown]
  - Middle insomnia [Unknown]
  - Sputum discoloured [Unknown]
  - Bronchiectasis [Recovered/Resolved]

NARRATIVE: CASE EVENT DATE: 20231031
